FAERS Safety Report 13422446 (Version 1)
Quarter: 2017Q2

REPORT INFORMATION
  Report Type: Spontaneous
  Country: US (occurrence: US)
  Receive Date: 20170409
  Receipt Date: 20170409
  Transmission Date: 20170830
  Serious: Yes (Disabling)
  Sender: FDA-Public Use
  Company Number: None

PATIENT
  Age: 40 Year
  Sex: Female
  Weight: 63 kg

DRUGS (6)
  1. ESCITALOPRAM [Suspect]
     Active Substance: ESCITALOPRAM OXALATE
     Indication: ANXIETY
     Dosage: ?          QUANTITY:1 TABLET(S);?
     Route: 048
     Dates: end: 20170409
  2. MULTI VITAMIN [Concomitant]
     Active Substance: VITAMINS
  3. LEXAPO [Concomitant]
  4. VITAMIN D [Concomitant]
     Active Substance: CHOLECALCIFEROL
  5. CLARITIN [Concomitant]
     Active Substance: LORATADINE
  6. MELATONIN [Concomitant]
     Active Substance: MELATONIN

REACTIONS (5)
  - Anxiety [None]
  - Memory impairment [None]
  - Disease recurrence [None]
  - Cognitive disorder [None]
  - Therapy cessation [None]

NARRATIVE: CASE EVENT DATE: 20170409
